FAERS Safety Report 13405406 (Version 1)
Quarter: 2017Q2

REPORT INFORMATION
  Report Type: Spontaneous
  Country: US (occurrence: US)
  Receive Date: 20170405
  Receipt Date: 20170405
  Transmission Date: 20170830
  Serious: No
  Sender: FDA-Public Use
  Company Number: US-PFIZER INC-2017137826

PATIENT
  Age: 66 Year
  Sex: Male

DRUGS (4)
  1. IBUPROFEN. [Suspect]
     Active Substance: IBUPROFEN
     Dosage: UNK
  2. ANUCORT-HC [Suspect]
     Active Substance: HYDROCORTISONE ACETATE
     Dosage: UNK
  3. TIMOLOL. [Suspect]
     Active Substance: TIMOLOL
     Dosage: UNK
  4. XALATAN [Suspect]
     Active Substance: LATANOPROST
     Dosage: UNK

REACTIONS (1)
  - Drug hypersensitivity [Unknown]
